FAERS Safety Report 9718294 (Version 1)
Quarter: 2013Q4

REPORT INFORMATION
  Report Type: Spontaneous
  Country: US (occurrence: US)
  Receive Date: 20131125
  Receipt Date: 20131125
  Transmission Date: 20140711
  Serious: No
  Sender: FDA-Public Use
  Company Number: US-VIVUS-2013V1000224

PATIENT
  Age: 54 Year
  Sex: Male

DRUGS (3)
  1. QSYMIA 3.75MG/23MG [Suspect]
     Indication: WEIGHT DECREASED
     Route: 048
     Dates: start: 20130318
  2. LOSARTIN [Concomitant]
     Indication: BLOOD PRESSURE
  3. OMEPRAZOLE [Concomitant]
     Indication: DYSPEPSIA

REACTIONS (2)
  - Anger [Not Recovered/Not Resolved]
  - Irritability [Not Recovered/Not Resolved]
